FAERS Safety Report 5177362-3 (Version None)
Quarter: 2006Q4

REPORT INFORMATION
  Report Type: 
  Country: None (occurrence: None)
  Receive Date: 20061218
  Receipt Date: 20061009
  Transmission Date: 20070319
  Serious: Yes (Other)
  Sender: FDA-Public Use
  Company Number: PHEH2006US12698

PATIENT
  Age: 52 Year
  Sex: Female

DRUGS (5)
  1. FLUOROURACIL [Concomitant]
     Dates: start: 20020101, end: 20060101
  2. OXALIPLATIN [Concomitant]
     Dosage: 200 MG, ONCE/SINGLE
     Dates: start: 20041001, end: 20041001
  3. LEUCOVORIN CALCIUM [Concomitant]
     Indication: RECTAL CANCER
     Dosage: 810 MG, ONCE/SINGLE
     Dates: start: 20041001, end: 20041001
  4. XELODA [Concomitant]
     Dates: start: 20030901, end: 20040901
  5. ZOMETA [Suspect]
     Indication: METASTASES TO BONE
     Dosage: 4MG Q4WK
     Dates: start: 20040312, end: 20060918

REACTIONS (4)
  - BONE DISORDER [None]
  - BONE PAIN [None]
  - DENTAL OPERATION [None]
  - TOOTH EXTRACTION [None]
